FAERS Safety Report 7439192-9 (Version None)
Quarter: 2011Q2

REPORT INFORMATION
  Report Type: 
  Country: None (occurrence: None)
  Receive Date: 20110427
  Receipt Date: 20110418
  Transmission Date: 20111010
  Serious: Yes (Life-Threatening, Hospitalization)
  Sender: FDA-Public Use
  Company Number: JP-JNJFOC-20110406281

PATIENT
  Sex: Female

DRUGS (2)
  1. LEVOFLOXACIN [Suspect]
     Indication: PNEUMONIA
     Route: 041
  2. FIRSTCIN [Concomitant]
     Indication: PNEUMONIA
     Route: 065

REACTIONS (3)
  - NAUSEA [None]
  - DIPLOPIA [None]
  - ANAPHYLACTOID SHOCK [None]
